FAERS Safety Report 11136178 (Version 1)
Quarter: 2015Q2

REPORT INFORMATION
  Report Type: Spontaneous
  Country: CA (occurrence: CA)
  Receive Date: 20150526
  Receipt Date: 20150526
  Transmission Date: 20150821
  Serious: Yes (Other)
  Sender: FDA-Public Use
  Company Number: CA-ASTRAZENECA-2015SE50252

PATIENT
  Age: 57 Year
  Sex: Male

DRUGS (6)
  1. APO-AMLODIPINE [Concomitant]
     Active Substance: AMLODIPINE BESYLATE
     Route: 048
     Dates: start: 2012
  2. ROBAXISAL C [Concomitant]
     Dosage: AS REQUIRED
     Route: 048
     Dates: start: 2012
  3. CRESTOR [Suspect]
     Active Substance: ROSUVASTATIN CALCIUM
     Route: 048
     Dates: start: 201501
  4. EZETROL [Concomitant]
     Active Substance: EZETIMIBE
     Route: 048
     Dates: start: 2012
  5. ATACAND [Suspect]
     Active Substance: CANDESARTAN CILEXETIL
     Route: 048
     Dates: start: 2012
  6. VALTREX [Concomitant]
     Active Substance: VALACYCLOVIR HYDROCHLORIDE
     Route: 048
     Dates: start: 2012

REACTIONS (1)
  - Oral lichen planus [Not Recovered/Not Resolved]

NARRATIVE: CASE EVENT DATE: 201501
